FAERS Safety Report 6840147-3 (Version None)
Quarter: 2010Q3

REPORT INFORMATION
  Report Type: 
  Country: None (occurrence: None)
  Receive Date: 20100714
  Receipt Date: 20100705
  Transmission Date: 20110219
  Serious: Yes (Death, Hospitalization)
  Sender: FDA-Public Use
  Company Number: JP-BAYER-201011168BYL

PATIENT
  Age: 72 Year
  Sex: Male

DRUGS (2)
  1. NEXAVAR [Suspect]
     Indication: HEPATIC NEOPLASM MALIGNANT
     Dosage: TOTAL DAILY DOSE: 800 MG  UNIT DOSE: 200 MG
     Route: 048
     Dates: start: 20100201, end: 20100407
  2. HACHIMIJIO-GAN [Concomitant]
     Indication: NOCTURIA
     Dosage: UNIT DOSE: 2.5 G
     Route: 048
     Dates: start: 20100215, end: 20100407

REACTIONS (5)
  - ASCITES [None]
  - HEPATIC FAILURE [None]
  - PALMAR-PLANTAR ERYTHRODYSAESTHESIA SYNDROME [None]
  - PLEURAL EFFUSION [None]
  - RENAL FAILURE [None]
